FAERS Safety Report 23186098 (Version 2)
Quarter: 2024Q4

REPORT INFORMATION
  Report Type: Report from Study
  Country: US (occurrence: US)
  Receive Date: 20231115
  Receipt Date: 20241203
  Transmission Date: 20250114
  Serious: Yes (Disabling)
  Sender: NOVARTIS
  Company Number: US-002147023-NVSC2023US243136

PATIENT
  Age: 57 Year
  Sex: Male
  Weight: 136.08 kg

DRUGS (1)
  1. ENTRESTO [Suspect]
     Active Substance: SACUBITRIL\VALSARTAN
     Indication: Cardiac failure
     Dosage: UNK
     Route: 048

REACTIONS (6)
  - Illness [Unknown]
  - Gait disturbance [Unknown]
  - Chest pain [Unknown]
  - Asthenia [Unknown]
  - Limb discomfort [Unknown]
  - Product dose omission issue [Unknown]

NARRATIVE: CASE EVENT DATE: 20231101
